FAERS Safety Report 26210502 (Version 1)
Quarter: 2025Q4

REPORT INFORMATION
  Report Type: Spontaneous
  Country: GB (occurrence: GB)
  Receive Date: 20251229
  Receipt Date: 20251229
  Transmission Date: 20260118
  Serious: Yes (Hospitalization, Other)
  Sender: AUROBINDO
  Company Number: GB-MHRA-MIDB-f9988db3-f60c-4734-9543-a8b2a54635a1

PATIENT
  Age: 62 Year
  Sex: Female

DRUGS (24)
  1. AMLODIPINE [Suspect]
     Active Substance: AMLODIPINE BESYLATE
     Indication: Product used for unknown indication
     Dosage: 10 MILLIGRAM, ONCE A DAY
     Route: 065
  2. FLUDROCORTISONE [Suspect]
     Active Substance: FLUDROCORTISONE
     Indication: Product used for unknown indication
     Dosage: 100 MICROGRAM (HALF A TABLET TO BE TAKEN EACH DAY)
     Route: 065
  3. AZELASTINE [Concomitant]
     Active Substance: AZELASTINE
     Indication: Product used for unknown indication
     Dosage: UNK
     Route: 065
  4. ATORVASTATIN [Concomitant]
     Active Substance: ATORVASTATIN
     Indication: Product used for unknown indication
     Dosage: 20 MILLIGRAM, ONCE A DAY (TO BE TAKEN EACH NIGHT)
     Route: 065
  5. ARANESP [Concomitant]
     Active Substance: DARBEPOETIN ALFA
     Indication: Product used for unknown indication
     Dosage: 80 MICROGRAMS / 0.4 ML SOLUTION FOR INJECTION PRE-FILLEDSYRINGES 80 MCG EVERY 14 DAYS AS PER TTO 30 / 06 / 25 0.01 PRE-FILLED DISPOSABLE INJECTION SUPPORTING INFORMATION: [MESSAGE TO PHARMACY: NEXT DOSE WAS DUE 02 / 07 / 25 ] - HAD LAST WEEK ON TUESDAY. STATES SELF ADMINISTERS.
     Route: 065
  6. Colecalciferol 400 unit / Calcium carbonate [Concomitant]
     Indication: Product used for unknown indication
     Dosage: 1.5 GRAM, TWO TIMES A DAY (CHEWABLE TABLETS CHEW OR SUCK)
     Route: 065
  7. Olive oil ear drops [Concomitant]
     Indication: Product used for unknown indication
     Dosage: APPLY TO LEFT EAR TWICE A DAY FOR AT LEAST 10 DAYS 10 ML -
     Route: 065
  8. FLUTICASONE [Concomitant]
     Active Substance: FLUTICASONE
     Indication: Product used for unknown indication
     Dosage: UNK
     Route: 065
  9. CINNARIZINE [Concomitant]
     Active Substance: CINNARIZINE
     Indication: Product used for unknown indication
     Dosage: 15 MILLIGRAM, 3 TIMES A DAY (84 TABLET -NOT SURE)
     Route: 065
  10. BETAHISTINE [Concomitant]
     Active Substance: BETAHISTINE
     Indication: Product used for unknown indication
     Dosage: 16 MILLIGRAM, 3 TIMES A DAY
     Route: 065
  11. ACETAMINOPHEN [Concomitant]
     Active Substance: ACETAMINOPHEN
     Indication: Product used for unknown indication
     Dosage: 500 MILLIGRAM (ONE TABLET TO BE TAKEN EVERY 4-6 HOURS UP TO FOUR TIMES A DAY)
     Route: 065
  12. DERMOL [Concomitant]
     Active Substance: BENZALKONIUM CHLORIDE\CHLORHEXIDINE HYDROCHLORIDE\ISOPROPYL MYRISTATE\PARAFFIN
     Indication: Product used for unknown indication
     Dosage: APPLY TO SKIN OR USE AS A SOAP SUBSTITUTE
     Route: 065
  13. TRESIBA [Concomitant]
     Active Substance: INSULIN DEGLUDEC
     Indication: Product used for unknown indication
     Dosage: 200 UNITS / ML SOLUTION FOR INJECTION 3 ML PRE-FILLED PENS FOR SUBCUTANEOUS INJECTION, ACCORDING TO REQUIREMENTS - 8 UNITS ON - USUALLY 10PM
     Route: 065
  14. INSULIN ASPART [Concomitant]
     Active Substance: INSULIN ASPART
     Indication: Product used for unknown indication
     Dosage: 100 UNITS / ML SOLUTION FOR INJECTION 3 ML PRE-FILLED SOLOSTAR PENS FOR SUBCUTANEOUSINJECTION, ACCORDING TO REQUIREMENTS - 2 UNITS OM, 2 UNITS, AT LUNCH, 2 UNITS AT TEATIME ON TTO
     Route: 065
  15. FAMOTIDINE [Concomitant]
     Active Substance: FAMOTIDINE
     Indication: Product used for unknown indication
     Dosage: 20 MILLIGRAM, TWO TIMES A DAY
     Route: 065
  16. Ensure Plus milkshake style liquid strawberry [Concomitant]
     Indication: Product used for unknown indication
     Dosage: TAKE THE CONTENTS OF ONE BOTTLE THREE TIMES A DAY
     Route: 065
  17. Colecalciferol 400 unit / Calcium carbonate [Concomitant]
     Indication: Product used for unknown indication
     Dosage: 1.5 GRAM, TWO TIMES A DAY (CHEWABLE TABLETS CHEW OR SUCK)
     Route: 065
  18. SENNA [Concomitant]
     Active Substance: SENNOSIDES
     Indication: Product used for unknown indication
     Dosage: 7.5 MILLIGRAM, AT BED TIME (TAKE TWO TABLETS)
     Route: 065
  19. SODIUM BICARBONATE [Concomitant]
     Active Substance: SODIUM BICARBONATE
     Indication: Product used for unknown indication
     Dosage: 500 MILLIGRAM, TWO TIMES A DAY
     Route: 065
  20. ACETAMINOPHEN [Concomitant]
     Active Substance: ACETAMINOPHEN
     Indication: Product used for unknown indication
     Dosage: UNK
     Route: 065
  21. FEXOFENADINE [Concomitant]
     Active Substance: FEXOFENADINE HYDROCHLORIDE
     Indication: Product used for unknown indication
     Dosage: 180 MILLIGRAM, ONCE A DAY
     Route: 065
  22. DOCUSATE [Concomitant]
     Active Substance: DOCUSATE
     Indication: Product used for unknown indication
     Dosage: 100 MILLIGRAM, TWO TIMES A DAY (TWO TABLETS)
     Route: 065
  23. AZELASTINE [Concomitant]
     Active Substance: AZELASTINE
     Indication: Product used for unknown indication
     Dosage: 137 MICROGRAM/DOSIS (ONE SPRAY TO BE USED IN EACH NOSTRIL TWICE A DAY 1 X 120 DOSE)
     Route: 065
  24. LEVETIRACETAM [Concomitant]
     Active Substance: LEVETIRACETAM
     Indication: Product used for unknown indication
     Dosage: 500 MILLIGRAM, TWO TIMES A DAY
     Route: 065

REACTIONS (2)
  - Swelling face [Unknown]
  - Oedema peripheral [Unknown]
